FAERS Safety Report 15187864 (Version 1)
Quarter: 2018Q3

REPORT INFORMATION
  Report Type: Spontaneous
  Country: DE (occurrence: DE)
  Receive Date: 20180724
  Receipt Date: 20180724
  Transmission Date: 20181010
  Serious: Yes (Death, Life-Threatening, Other)
  Sender: FDA-Public Use
  Company Number: DE-BRISTOL-MYERS SQUIBB COMPANY-BMS-2018-068672

PATIENT
  Age: 74 Year
  Sex: Male
  Weight: 74 kg

DRUGS (2)
  1. OPDIVO [Suspect]
     Active Substance: NIVOLUMAB
     Indication: NON-SMALL CELL LUNG CANCER
     Dosage: 240 MG, UNK
     Route: 042
  2. OPDIVO [Suspect]
     Active Substance: NIVOLUMAB
     Indication: PRODUCT USED FOR UNKNOWN INDICATION
     Dosage: 240 MG, UNK
     Route: 042

REACTIONS (5)
  - Malignant neoplasm progression [Unknown]
  - Muscle atrophy [Unknown]
  - Ophthalmoplegia [Unknown]
  - Asthenia [Unknown]
  - Myositis [Fatal]

NARRATIVE: CASE EVENT DATE: 20180618
